FAERS Safety Report 18351732 (Version 4)
Quarter: 2020Q4

REPORT INFORMATION
  Report Type: Report from Study
  Country: CH (occurrence: CH)
  Receive Date: 20201007
  Receipt Date: 20201228
  Transmission Date: 20210114
  Serious: Yes (Other)
  Sender: FDA-Public Use
  Company Number: CH-BEH-2020116649

PATIENT
  Age: 50 Year
  Sex: Male
  Weight: 65 kg

DRUGS (7)
  1. DAFALGAN [Concomitant]
     Active Substance: ACETAMINOPHEN
     Dosage: 1 GRAM
     Route: 048
  2. PRIVIGEN [Suspect]
     Active Substance: HUMAN IMMUNOGLOBULIN G
     Dosage: 40 GRAM, SINGLE
     Route: 065
  3. PRIVIGEN [Suspect]
     Active Substance: HUMAN IMMUNOGLOBULIN G
     Dosage: 40 GRAM, SINGLE
     Route: 065
     Dates: start: 20201027, end: 20201027
  4. PRIVIGEN [Suspect]
     Active Substance: HUMAN IMMUNOGLOBULIN G
     Dosage: 40 GRAM, SINGLE
     Route: 065
  5. VITARUBIN [CYANOCOBALAMIN] [Concomitant]
     Indication: VITAMIN B12 DEFICIENCY
     Dosage: EVERY 2 MONTHS
     Route: 030
  6. PRIVIGEN [Suspect]
     Active Substance: HUMAN IMMUNOGLOBULIN G
     Indication: IMMUNODEFICIENCY COMMON VARIABLE
     Dosage: 40 GRAM, QMT
     Route: 042
     Dates: start: 20200424
  7. PRIVIGEN [Suspect]
     Active Substance: HUMAN IMMUNOGLOBULIN G
     Dosage: 40 GRAM, SINGLE
     Route: 065

REACTIONS (17)
  - Hypertension [Not Recovered/Not Resolved]
  - Hypertension [Recovered/Resolved]
  - Nervousness [Unknown]
  - Headache [Recovered/Resolved]
  - Hypertension [Recovered/Resolved]
  - Headache [Recovered/Resolved]
  - Hypertension [Recovered/Resolved]
  - Hypertension [Recovered/Resolved]
  - Hypertension [Recovered/Resolved]
  - Fatigue [Recovered/Resolved]
  - Fatigue [Recovered/Resolved]
  - Vomiting [Recovered/Resolved]
  - Hypertension [Unknown]
  - Hypertension [Not Recovered/Not Resolved]
  - Bradycardia [Not Recovered/Not Resolved]
  - Headache [Recovered/Resolved]
  - Bradycardia [Unknown]

NARRATIVE: CASE EVENT DATE: 20200424
